FAERS Safety Report 7424526-1 (Version None)
Quarter: 2011Q2

REPORT INFORMATION
  Report Type: 
  Country: None (occurrence: None)
  Receive Date: 20110419
  Receipt Date: 20110119
  Transmission Date: 20111010
  Serious: No
  Sender: FDA-Public Use
  Company Number: US-MUTUAL PHARMACEUTICAL COMPANY, INC.-DXCY20110002

PATIENT
  Age: 50 Year
  Sex: Female

DRUGS (2)
  1. METROGEL [Suspect]
     Route: 065
  2. DOXYCYCLINE [Suspect]
     Route: 065

REACTIONS (1)
  - DRUG INEFFECTIVE [None]
